FAERS Safety Report 5088685-0 (Version None)
Quarter: 2006Q3

REPORT INFORMATION
  Report Type: 
  Country: None (occurrence: None)
  Receive Date: 20060822
  Receipt Date: 20060612
  Transmission Date: 20061208
  Serious: Yes (Other)
  Sender: FDA-Public Use
  Company Number: F03200600130

PATIENT
  Age: 56 Year
  Sex: Male
  Weight: 79.8331 kg

DRUGS (23)
  1. OXALIPLATIN- SOLUTION - 85 MG/M2 [Suspect]
     Indication: ENDOCRINE NEOPLASM
     Dosage: 170 MG, 85 MG/M2 EVERY 2 WEEKS - INTRAVENOUS NOS
     Route: 042
     Dates: start: 20060530, end: 20060530
  2. OXALIPLATIN- SOLUTION - 85 MG/M2 [Suspect]
     Indication: PANCREATIC NEOPLASM
     Dosage: 170 MG, 85 MG/M2 EVERY 2 WEEKS - INTRAVENOUS NOS
     Route: 042
     Dates: start: 20060530, end: 20060530
  3. BEVACIZUMAB - SOLUTION - 5 MG/KG [Suspect]
     Indication: ENDOCRINE NEOPLASM
     Dosage: . MG, 5 MG/KG EVERY 2 WEEKS - INTRAVENOUS NOS
     Route: 042
     Dates: start: 20060530, end: 20060530
  4. BEVACIZUMAB - SOLUTION - 5 MG/KG [Suspect]
     Indication: PANCREATIC NEOPLASM
     Dosage: . MG, 5 MG/KG EVERY 2 WEEKS - INTRAVENOUS NOS
     Route: 042
     Dates: start: 20060530, end: 20060530
  5. FLUOROURACIL [Suspect]
     Indication: ENDOCRINE NEOPLASM
     Dosage: 800 MG + 2400 MG, 400 MG/M2 + 200 MG/M2 EVERY  WEEKS - INTRAVENOUS
     Route: 042
     Dates: start: 20060530, end: 20060530
  6. FLUOROURACIL [Suspect]
     Indication: PANCREATIC NEOPLASM
     Dosage: 800 MG + 2400 MG, 400 MG/M2 + 200 MG/M2 EVERY  WEEKS - INTRAVENOUS
     Route: 042
     Dates: start: 20060530, end: 20060530
  7. LEUCOVORIN CALCIUM [Suspect]
     Indication: ENDOCRINE NEOPLASM
     Dosage: 400 MG, 200 MG/M2 EVERY 2 WEEKS - INTRAVENOUS NOS
     Route: 042
     Dates: start: 20060530, end: 20060530
  8. LEUCOVORIN CALCIUM [Suspect]
     Indication: PANCREATIC NEOPLASM
     Dosage: 400 MG, 200 MG/M2 EVERY 2 WEEKS - INTRAVENOUS NOS
     Route: 042
     Dates: start: 20060530, end: 20060530
  9. DEXAMETHASONE [Suspect]
     Indication: ENDOCRINE NEOPLASM
     Dosage: 20 MG Q2W - INTRAVENOUS NOS
     Route: 042
     Dates: start: 20060530, end: 20060530
  10. DEXAMETHASONE [Suspect]
     Indication: PANCREATIC NEOPLASM
     Dosage: 20 MG Q2W - INTRAVENOUS NOS
     Route: 042
     Dates: start: 20060530, end: 20060530
  11. LORAZEPAM - TABLET 1 MG [Suspect]
     Indication: ENDOCRINE NEOPLASM
     Dosage: 1 MG Q2W - ORAL
     Route: 048
     Dates: start: 20060530, end: 20060530
  12. LORAZEPAM - TABLET 1 MG [Suspect]
     Indication: PANCREATIC NEOPLASM
     Dosage: 1 MG Q2W - ORAL
     Route: 048
     Dates: start: 20060530, end: 20060530
  13. GRANISETRON - SOLUTION - 10 MCG/KG [Suspect]
     Indication: ENDOCRINE NEOPLASM
     Dosage: 800 MCG, 10 MCG/KG EVERY 2 WEEKS - INTRAVENOUS NOS
     Route: 042
     Dates: start: 20060530, end: 20060530
  14. GRANISETRON - SOLUTION - 10 MCG/KG [Suspect]
     Indication: PANCREATIC NEOPLASM
     Dosage: 800 MCG, 10 MCG/KG EVERY 2 WEEKS - INTRAVENOUS NOS
     Route: 042
     Dates: start: 20060530, end: 20060530
  15. ACETAMINOPHEN [Concomitant]
  16. LOPERAMIDE HYDROCHLORIDE [Concomitant]
  17. LORAZEPAM [Concomitant]
  18. VICODIN [Concomitant]
  19. LISINOPRIL [Concomitant]
  20. AMLODIPINE BESYLATE [Concomitant]
  21. ACETYLSALICYLIC ACID [Concomitant]
  22. FEXOFENADINE HYDROCHLORIDE [Concomitant]
  23. OMEPRAZOLE [Concomitant]

REACTIONS (7)
  - ABDOMINAL PAIN [None]
  - DIARRHOEA [None]
  - ENTERITIS [None]
  - FEBRILE NEUTROPENIA [None]
  - HAEMATOCRIT DECREASED [None]
  - HAEMOGLOBIN DECREASED [None]
  - SMALL INTESTINAL OBSTRUCTION [None]
